FAERS Safety Report 10273856 (Version 1)
Quarter: 2014Q3

REPORT INFORMATION
  Report Type: Spontaneous
  Country: FR (occurrence: FR)
  Receive Date: 20140702
  Receipt Date: 20140702
  Transmission Date: 20150326
  Serious: Yes (Hospitalization)
  Sender: FDA-Public Use
  Company Number: FR-GLAXOSMITHKLINE-B1007362A

PATIENT
  Age: 50 Year
  Sex: Male

DRUGS (8)
  1. AUGMENTIN [Suspect]
     Active Substance: AMOXICILLIN\CLAVULANATE POTASSIUM
     Indication: ANTIBIOTIC PROPHYLAXIS
     Route: 065
     Dates: start: 20130627
  2. ZINNAT [Suspect]
     Active Substance: CEFUROXIME AXETIL
     Indication: ALLERGY TEST
     Route: 065
     Dates: start: 20140226
  3. KETAMINE [Concomitant]
     Active Substance: KETAMINE
     Indication: ANAESTHESIA
     Route: 065
     Dates: start: 20130627
  4. REMIFENTANIL [Concomitant]
     Active Substance: REMIFENTANIL
     Indication: ANAESTHESIA
     Route: 065
     Dates: start: 20130627
  5. GENTAMYCINE [Concomitant]
     Active Substance: GENTAMICIN
     Indication: ANAESTHESIA
     Route: 065
     Dates: start: 20130627
  6. PROPOFOL. [Concomitant]
     Active Substance: PROPOFOL
     Indication: ANAESTHESIA
     Route: 065
     Dates: start: 20130627
  7. DESFLURANE [Concomitant]
     Active Substance: DESFLURANE
     Indication: ANAESTHESIA
     Route: 065
     Dates: start: 20130627
  8. ATRACURIUM [Concomitant]
     Active Substance: ATRACURIUM
     Indication: ANAESTHESIA
     Route: 065
     Dates: start: 20130627

REACTIONS (9)
  - Generalised erythema [Recovered/Resolved]
  - Cardiovascular disorder [Recovered/Resolved]
  - Diarrhoea [Recovered/Resolved]
  - Hypotension [Recovered/Resolved]
  - Urticaria [Recovered/Resolved]
  - Hypersensitivity [Recovered/Resolved]
  - Tachycardia [Recovered/Resolved]
  - Bronchospasm [Recovered/Resolved]
  - Anaphylactic reaction [Recovered/Resolved]

NARRATIVE: CASE EVENT DATE: 20130627
